FAERS Safety Report 7125104-4 (Version None)
Quarter: 2010Q4

REPORT INFORMATION
  Report Type: 
  Country: None (occurrence: None)
  Receive Date: 20101129
  Receipt Date: 20101101
  Transmission Date: 20110411
  Serious: Yes (Hospitalization)
  Sender: FDA-Public Use
  Company Number: DE-AMGEN-UK424488

PATIENT
  Age: 71 Year
  Sex: Female

DRUGS (6)
  1. PANITUMUMAB [Suspect]
     Indication: NON-SMALL CELL LUNG CANCER
     Dosage: 9 MG/KG, UNK
     Dates: start: 20100603
  2. PEMETREXED DISODIUM [Suspect]
     Dosage: 500 MG/M2, UNK
     Dates: start: 20100603
  3. CISPLATIN [Suspect]
     Dosage: 75 MG/M2, UNK
     Dates: start: 20100603
  4. ZOMETA [Concomitant]
     Dosage: 4 MG, UNK
     Dates: start: 20100528
  5. FOLSAN [Concomitant]
     Dosage: UNK
     Dates: start: 20100528
  6. VITAMIN B12                        /00056201/ [Concomitant]
     Dosage: UNK
     Dates: start: 20100528

REACTIONS (4)
  - HYPOKALAEMIA [None]
  - HYPONATRAEMIA [None]
  - REFLUX OESOPHAGITIS [None]
  - THROMBOPHLEBITIS [None]
